FAERS Safety Report 16866759 (Version 2)
Quarter: 2019Q4

REPORT INFORMATION
  Report Type: Spontaneous
  Country: GR (occurrence: GR)
  Receive Date: 20190930
  Receipt Date: 20191025
  Transmission Date: 20200122
  Serious: Yes (Death, Hospitalization)
  Sender: FDA-Public Use
  Company Number: PHHY2019GR224434

PATIENT
  Sex: Male
  Weight: 3.23 kg

DRUGS (1)
  1. GILENYA [Suspect]
     Active Substance: FINGOLIMOD HYDROCHLORIDE
     Indication: FOETAL EXPOSURE DURING PREGNANCY
     Dosage: MATERNAL DOSE:UNKNOWN
     Route: 064

REACTIONS (4)
  - Pneumothorax [Fatal]
  - Foetal exposure during pregnancy [Unknown]
  - Respiratory disorder [Fatal]
  - Respiratory failure [Fatal]
